FAERS Safety Report 5285824-3 (Version None)
Quarter: 2007Q1

REPORT INFORMATION
  Report Type: 
  Country: None (occurrence: None)
  Receive Date: 20070116
  Receipt Date: 20061017
  Transmission Date: 20070707
  Serious: No
  Sender: FDA-Public Use
  Company Number: 2006SP003715

PATIENT
  Age: 55 Year
  Sex: Female
  Weight: 72.5755 kg

DRUGS (11)
  1. LUNESTA [Suspect]
     Indication: INSOMNIA
     Dosage: 2 MG;ORAL
     Route: 048
     Dates: start: 20060901
  2. PLAQUENIL [Concomitant]
  3. SYNTHROID [Concomitant]
  4. CELEXA [Concomitant]
  5. DHEA [Concomitant]
  6. ACIPHEX [Concomitant]
  7. VITAMINS [Concomitant]
  8. MINERALS NOS [Concomitant]
  9. MAGNESIUM [Concomitant]
  10. LACTOBACILLUS ACIDOPHILUS [Concomitant]
  11. AMBIEN [Concomitant]

REACTIONS (1)
  - INSOMNIA [None]
